FAERS Safety Report 17430851 (Version 1)
Quarter: 2020Q1

REPORT INFORMATION
  Report Type: Spontaneous
  Country: US (occurrence: US)
  Receive Date: 20200217
  Receipt Date: 20200217
  Transmission Date: 20200409
  Serious: Yes (Other)
  Sender: FDA-Public Use
  Company Number: None

PATIENT
  Age: 58 Year
  Sex: Female

DRUGS (1)
  1. DUPIXENT [Suspect]
     Active Substance: DUPILUMAB
     Indication: DERMATITIS ATOPIC
     Dosage: ?          OTHER FREQUENCY:TWICE MONTHLY;?
     Route: 058

REACTIONS (9)
  - Eye swelling [None]
  - Abdominal discomfort [None]
  - Myalgia [None]
  - Granuloma [None]
  - Pyrexia [None]
  - Nausea [None]
  - Musculoskeletal stiffness [None]
  - Splenic lesion [None]
  - Ocular discomfort [None]

NARRATIVE: CASE EVENT DATE: 20191007
